FAERS Safety Report 15321124 (Version 2)
Quarter: 2018Q3

REPORT INFORMATION
  Report Type: Spontaneous
  Country: US (occurrence: US)
  Receive Date: 20180827
  Receipt Date: 20180917
  Transmission Date: 20181010
  Serious: Yes (Hospitalization)
  Sender: FDA-Public Use
  Company Number: US-PFIZER INC-2017082222

PATIENT
  Age: 53 Year
  Sex: Female
  Weight: 74.84 kg

DRUGS (7)
  1. LATANOPROST. [Concomitant]
     Active Substance: LATANOPROST
     Indication: OCULAR HYPERTENSION
     Dosage: 2 GTT, 1X/DAY
  2. LYRICA [Suspect]
     Active Substance: PREGABALIN
     Indication: FIBROMYALGIA
     Dosage: 200 MG, 3X/DAY  (3 TIMES PER DAY; EVERY 8 HOURS)
     Route: 048
     Dates: start: 2008
  3. LYRICA [Suspect]
     Active Substance: PREGABALIN
     Indication: RHEUMATOID ARTHRITIS
  4. RESTASIS [Concomitant]
     Active Substance: CYCLOSPORINE
     Indication: DRY EYE
     Dosage: 2 GTT, 2X/DAY (ONE DROP IN BOTH EYES IN THE MORNING AND AT NIGHT)
  5. LINZESS [Concomitant]
     Active Substance: LINACLOTIDE
     Indication: IMPAIRED GASTRIC EMPTYING
  6. LYRICA [Suspect]
     Active Substance: PREGABALIN
     Indication: PAIN
  7. LINZESS [Concomitant]
     Active Substance: LINACLOTIDE
     Indication: GASTROINTESTINAL DISORDER
     Dosage: UNK

REACTIONS (5)
  - Intentional product misuse [Unknown]
  - Sepsis [Unknown]
  - Weight increased [Recovering/Resolving]
  - Constipation [Recovered/Resolved]
  - Arthropod bite [Unknown]

NARRATIVE: CASE EVENT DATE: 2010
